FAERS Safety Report 5036802-0 (Version None)
Quarter: 2006Q2

REPORT INFORMATION
  Report Type: 
  Country: None (occurrence: None)
  Receive Date: 20060601
  Receipt Date: 20060313
  Transmission Date: 20061013
  Serious: Yes (Other)
  Sender: FDA-Public Use
  Company Number: US200603003389

PATIENT
  Age: 48 Year
  Sex: Female

DRUGS (12)
  1. CYMBALTA [Suspect]
     Indication: BIPOLAR DISORDER
     Dosage: 60 MG, DAILY (1/D)
     Dates: start: 20050101
  2. CYMBALTA [Suspect]
     Indication: BIPOLAR DISORDER
     Dosage: 60 MG, DAILY (1/D)
     Dates: start: 20060101
  3. CYMBALTA [Suspect]
  4. DIPHENHYDRAMINE HCL [Concomitant]
  5. KLONOPIN [Concomitant]
  6. FUROSEMIDE [Concomitant]
  7. PROVIGIL [Concomitant]
  8. GEODON [Concomitant]
  9. LIPITOR [Concomitant]
  10. DETROL [Concomitant]
  11. POTASSIUM (POTASSIUM) [Concomitant]
  12. PAXIL [Concomitant]

REACTIONS (3)
  - DEPRESSED MOOD [None]
  - MEMORY IMPAIRMENT [None]
  - WEIGHT INCREASED [None]
